FAERS Safety Report 9155841 (Version 1)
Quarter: 2013Q1

REPORT INFORMATION
  Report Type: Spontaneous
  Country: US (occurrence: US)
  Receive Date: 20130311
  Receipt Date: 20130311
  Transmission Date: 20140127
  Serious: Yes (Other)
  Sender: FDA-Public Use
  Company Number: US-ASTRAZENECA-2013SE14023

PATIENT
  Age: 59 Year
  Sex: Male
  Weight: 122.5 kg

DRUGS (13)
  1. TOPROL  XL [Suspect]
     Indication: HYPERTENSION
     Route: 048
  2. CRESTOR [Suspect]
     Indication: BLOOD CHOLESTEROL ABNORMAL
     Route: 048
  3. VITAMIN B12 [Concomitant]
  4. LOW DOSE ASPIRIN [Concomitant]
     Dosage: 81 DAILY
  5. DIOVAN [Concomitant]
  6. DOXAZOSIN [Concomitant]
  7. TRICOR [Concomitant]
  8. MULTIVITAMIN [Concomitant]
  9. STRATTERA [Concomitant]
     Indication: ATTENTION DEFICIT/HYPERACTIVITY DISORDER
  10. LANTUS [Concomitant]
     Dosage: 80 UNITS TWICE DAILY
  11. EFFIENT [Concomitant]
     Dates: start: 2010
  12. CYMBALTA [Concomitant]
     Indication: NEUROPATHY PERIPHERAL
     Dosage: 60MG IN MORNING AND 30 MG AT NIGHT
  13. CYMBALTA [Concomitant]
     Indication: PARAESTHESIA
     Dosage: 60MG IN MORNING AND 30 MG AT NIGHT

REACTIONS (7)
  - Coronary artery occlusion [Unknown]
  - Blood glucose increased [Unknown]
  - Blood cholesterol abnormal [Unknown]
  - Neuropathy peripheral [Unknown]
  - Night sweats [Unknown]
  - Paraesthesia [Unknown]
  - Sleep disorder [Unknown]
